FAERS Safety Report 9209213 (Version 1)
Quarter: 2013Q2

REPORT INFORMATION
  Report Type: Spontaneous
  Country: US (occurrence: US)
  Receive Date: 20130404
  Receipt Date: 20130404
  Transmission Date: 20140414
  Serious: No
  Sender: FDA-Public Use
  Company Number: US-009507513-1304USA001747

PATIENT
  Age: 54 Year
  Sex: Male

DRUGS (12)
  1. VICTRELIS [Suspect]
     Indication: HEPATITIS C
     Dosage: 800 MG, TID, START ON WEEK 5
     Route: 048
  2. PEGASYS [Suspect]
     Indication: HEPATITIS C
     Dosage: 180 MCG/M
  3. RIBASPHERE [Suspect]
     Indication: HEPATITIS C
  4. PROMACTA [Concomitant]
     Dosage: UNK
  5. NOROXIN [Concomitant]
  6. XANAX [Concomitant]
  7. LASIX (FUROSEMIDE) [Concomitant]
  8. LACTULOSE [Concomitant]
     Dosage: SOLUTION, 10 GM/15
  9. NADOLOL [Concomitant]
  10. OMEPRAZOLE [Concomitant]
  11. SPIRONOLACT [Concomitant]
  12. LEXAPRO [Concomitant]

REACTIONS (1)
  - Adverse event [Unknown]
